FAERS Safety Report 18226986 (Version 1)
Quarter: 2020Q3

REPORT INFORMATION
  Report Type: Spontaneous
  Country: JP (occurrence: JP)
  Receive Date: 20200903
  Receipt Date: 20200903
  Transmission Date: 20201103
  Serious: Yes (Disabling)
  Sender: FDA-Public Use
  Company Number: JP-MYLANLABS-2020M1054779

PATIENT
  Age: 2 Year
  Sex: Female

DRUGS (9)
  1. ONON [Concomitant]
     Active Substance: PRANLUKAST
     Indication: RHINITIS
     Dosage: 100 MILLIGRAM, QD
     Route: 048
     Dates: start: 20200419, end: 20200605
  2. MIYA?BM [Concomitant]
     Active Substance: CLOSTRIDIUM BUTYRICUM SPORES STRAIN M-55
     Indication: GASTROINTESTINAL DISORDER
     Dosage: 0.8 GRAM, QD
     Route: 048
     Dates: start: 20200419, end: 20200515
  3. KLARICID                           /00984601/ [Suspect]
     Active Substance: CLARITHROMYCIN
     Indication: PNEUMONIA
     Dosage: 150 MILLIGRAM, QD
     Route: 048
     Dates: start: 20200419, end: 20200420
  4. POLYGALA SENEGA ROOT [Concomitant]
     Active Substance: POLYGALA SENEGA ROOT
     Indication: PRODUCTIVE COUGH
     Dosage: 4 MILLILITER, QD
     Route: 048
     Dates: start: 20200419, end: 20200501
  5. CEFZON /01130201/ [Concomitant]
     Active Substance: CEFDINIR
     Indication: PNEUMONIA
     Dosage: 150 MILLIGRAM, QD
     Route: 048
     Dates: start: 20200420, end: 20200501
  6. ERYTHROCIN DRY SYRUP [Suspect]
     Active Substance: ERYTHROMYCIN
     Indication: PNEUMONIA
     Dosage: 200 MILLIGRAM, QD
     Route: 048
     Dates: start: 20200501, end: 20200605
  7. MUCODYNE [Concomitant]
     Active Substance: CARBOCYSTEINE
     Indication: PRODUCTIVE COUGH
     Dosage: 450 MILLIGRAM, QD
     Route: 048
     Dates: start: 20200419, end: 20200605
  8. ASVERIN (TIPEPIDINE HIBENZATE) [Concomitant]
     Active Substance: TIPEPIDINE HIBENZATE
     Indication: COUGH
     Dosage: 3 MILLILITER, QD
     Route: 048
     Dates: start: 20200420, end: 20200501
  9. HOKUNALIN                          /00654901/ [Concomitant]
     Active Substance: TULOBUTEROL
     Indication: COUGH
     Dosage: 0.5 MILLIGRAM, QD
     Dates: start: 20200419, end: 20200605

REACTIONS (1)
  - Alopecia [Recovered/Resolved with Sequelae]

NARRATIVE: CASE EVENT DATE: 20200426
